FAERS Safety Report 21713405 (Version 1)
Quarter: 2022Q4

REPORT INFORMATION
  Report Type: Spontaneous
  Country: US (occurrence: US)
  Receive Date: 20221212
  Receipt Date: 20221212
  Transmission Date: 20230112
  Serious: Yes (Other)
  Sender: FDA-Public Use
  Company Number: US-ORG100016242-2022000464

PATIENT
  Age: 21 Year
  Sex: Female

DRUGS (4)
  1. EXPAREL [Suspect]
     Active Substance: BUPIVACAINE
     Indication: Postoperative analgesia
     Route: 050
     Dates: start: 20220317, end: 20220317
  2. BUPIVACAINE [Suspect]
     Active Substance: BUPIVACAINE
     Indication: Postoperative analgesia
     Route: 050
     Dates: start: 20220317, end: 20220317
  3. SALINE [Concomitant]
     Active Substance: SODIUM CHLORIDE
     Indication: Postoperative analgesia
     Route: 050
     Dates: start: 20220317, end: 20220317
  4. Lidocaine Skin Wheel [Concomitant]
     Indication: Anaesthesia
     Dosage: NOT PROVIDED, 20 MINS BEFORE ESP BLOCK
     Dates: start: 20220317, end: 20220317

REACTIONS (1)
  - Local anaesthetic systemic toxicity [Recovered/Resolved]

NARRATIVE: CASE EVENT DATE: 20220317
